FAERS Safety Report 25418117 (Version 1)
Quarter: 2025Q2

REPORT INFORMATION
  Report Type: Spontaneous
  Country: TR (occurrence: None)
  Receive Date: 20250609
  Receipt Date: 20250609
  Transmission Date: 20250717
  Serious: Yes (Other)
  Sender: FDA-CTU
  Company Number: None

PATIENT
  Age: 31 Year
  Sex: Female
  Weight: 70 kg

DRUGS (2)
  1. EMGALITY [Suspect]
     Active Substance: GALCANEZUMAB-GNLM
     Indication: Migraine
     Route: 058
     Dates: start: 20250114, end: 20250514
  2. SOLGAR MAGNESIUM SUPPLEMENT [Concomitant]

REACTIONS (4)
  - Alopecia [None]
  - Hair colour changes [None]
  - Physical product label issue [None]
  - Mental disorder [None]

NARRATIVE: CASE EVENT DATE: 20250126
